FAERS Safety Report 7527498-4 (Version None)
Quarter: 2011Q2

REPORT INFORMATION
  Report Type: 
  Country: None (occurrence: None)
  Receive Date: 20110527
  Receipt Date: 20110512
  Transmission Date: 20111010
  Serious: Yes (Death, Other)
  Sender: FDA-Public Use
  Company Number: AUR-APL-2011-01657

PATIENT
  Age: 76 Year
  Sex: Male
  Weight: 80 kg

DRUGS (11)
  1. ACETYL SALICYLIC ACID COMPOUND TAB [Concomitant]
  2. RAMIPRIL [Concomitant]
  3. CLOPIDOGREL [Suspect]
     Indication: ACUTE MYOCARDIAL INFARCTION
     Dosage: 75MG-DAILY-ORAL
     Route: 048
     Dates: start: 20110303, end: 20110308
  4. LEVOTHYROXINE SODIUM [Concomitant]
  5. SIMVASTATIN [Suspect]
     Indication: ACUTE MYOCARDIAL INFARCTION
     Dosage: 40MG-DAILY-ORAL
     Route: 048
     Dates: start: 20110302, end: 20110308
  6. BISOPROLOL FUMARATE [Concomitant]
  7. DIAZEPAM [Concomitant]
  8. THIAMINE [Concomitant]
  9. NICOTINAMIDE/RIBOFLAVIN/THIAMINE HYDROCHLORIDE (VITAMIN B COMPOUND) [Concomitant]
  10. FUROSEMIDE [Suspect]
     Indication: LEFT VENTRICULAR FAILURE
     Dosage: 20MG-DAILY-ORAL
     Route: 048
     Dates: start: 20110304, end: 20110307
  11. ALLOPURINOL [Concomitant]

REACTIONS (8)
  - C-REACTIVE PROTEIN INCREASED [None]
  - WHITE BLOOD CELL COUNT INCREASED [None]
  - ALANINE AMINOTRANSFERASE INCREASED [None]
  - ABDOMINAL PAIN UPPER [None]
  - LIVER INJURY [None]
  - PROTHROMBIN TIME PROLONGED [None]
  - LETHARGY [None]
  - SERUM FERRITIN INCREASED [None]
